FAERS Safety Report 10700862 (Version 1)
Quarter: 2015Q1

REPORT INFORMATION
  Report Type: Spontaneous
  Country: US (occurrence: US)
  Receive Date: 20150109
  Receipt Date: 20150109
  Transmission Date: 20150721
  Serious: Yes (Death, Hospitalization)
  Sender: FDA-Public Use
  Company Number: US-SPECTRUM PHARMACEUTICALS, INC.-14-F-US-00465

PATIENT
  Age: 66 Year
  Sex: Male
  Weight: 102 kg

DRUGS (1)
  1. FOLOTYN [Suspect]
     Active Substance: PRALATREXATE
     Indication: PERIPHERAL T-CELL LYMPHOMA UNSPECIFIED
     Dosage: 65 MG, SINGLE
     Dates: start: 20141007, end: 20141007

REACTIONS (7)
  - Pancytopenia [Unknown]
  - Tumour lysis syndrome [Fatal]
  - Malnutrition [Unknown]
  - Escherichia sepsis [Unknown]
  - Mucosal inflammation [Unknown]
  - Anaemia [Unknown]
  - Streptococcal bacteraemia [Unknown]

NARRATIVE: CASE EVENT DATE: 20141009
